FAERS Safety Report 7416410-4 (Version None)
Quarter: 2011Q2

REPORT INFORMATION
  Report Type: 
  Country: None (occurrence: None)
  Receive Date: 20110414
  Receipt Date: 20110413
  Transmission Date: 20111010
  Serious: Yes (Hospitalization)
  Sender: FDA-Public Use
  Company Number: UA-TEVA-2010XM22-04-00067

PATIENT
  Sex: Male
  Weight: 66 kg

DRUGS (47)
  1. ONDANSETRON [Concomitant]
     Indication: PREMEDICATION
     Dosage: 8 MILLIGRAM;
     Route: 042
     Dates: start: 20100810, end: 20100812
  2. ACIDUM ASCORBICUM 10% [Concomitant]
     Indication: PREMEDICATION
     Dosage: 10 ML;
     Route: 042
     Dates: start: 20100810, end: 20100812
  3. SPASMALGON [Concomitant]
     Indication: FEBRILE NEUTROPENIA
     Dosage: 5 ML;
     Route: 030
     Dates: start: 20100818, end: 20100822
  4. RANITIDINUM [Concomitant]
     Indication: PREMEDICATION
     Dosage: 50 MILLIGRAM;
     Route: 042
     Dates: start: 20100810, end: 20100812
  5. DEXTROSUM 5% [Concomitant]
     Indication: FEBRILE NEUTROPENIA
     Dosage: 200 ML;
     Route: 042
     Dates: start: 20100818, end: 20100824
  6. SOL. NACL 0.9 % [Concomitant]
     Dosage: 400 ML;
     Route: 042
     Dates: start: 20100820, end: 20100825
  7. RINGER'S SOLUTION [Concomitant]
     Indication: FEBRILE NEUTROPENIA
     Dosage: 200 ML;
     Route: 042
     Dates: start: 20100821, end: 20100821
  8. RINGER'S SOLUTION [Concomitant]
     Dosage: 200 ML;
     Route: 042
     Dates: start: 20100823, end: 20100823
  9. TRANEXAM [Concomitant]
     Indication: THROMBOCYTOPENIA
     Dosage: 4 ML;
     Route: 042
     Dates: start: 20100820, end: 20100822
  10. SPASMALGON [Concomitant]
     Dosage: 10 ML;
     Route: 030
     Dates: start: 20100818
  11. REAMBERIN [Concomitant]
     Indication: FEBRILE NEUTROPENIA
     Dosage: 400 ML;
     Route: 042
     Dates: start: 20100818, end: 20100825
  12. HEMOFARM [Concomitant]
     Indication: FEBRILE NEUTROPENIA
     Dosage: 500 ML;
     Route: 042
     Dates: start: 20100820, end: 20100821
  13. ONDANSETRON [Concomitant]
     Indication: FEBRILE NEUTROPENIA
     Dosage: 16 MILLIGRAM;
     Route: 042
     Dates: start: 20100818, end: 20100821
  14. MILDRONATE [Concomitant]
     Indication: FEBRILE NEUTROPENIA
     Dosage: 5 ML;
     Route: 042
     Dates: start: 20100821, end: 20100821
  15. ETOPOSIDE [Suspect]
     Indication: NON-SMALL CELL LUNG CANCER
     Dosage: 207 MILLIGRAM;
     Route: 041
     Dates: start: 20100810, end: 20100812
  16. MILDRONATE [Concomitant]
     Indication: PREMEDICATION
     Dosage: 5 ML;
     Route: 042
     Dates: start: 20100810, end: 20100812
  17. DEXAMETHASONE [Concomitant]
     Indication: PREMEDICATION
     Dosage: 20 MILLIGRAM;
     Route: 042
     Dates: start: 20100810, end: 20100810
  18. HARTMANN'S SOLUTION [Concomitant]
     Indication: FEBRILE NEUTROPENIA
     Dosage: 400 ML;
     Route: 042
     Dates: start: 20100818, end: 20100820
  19. SOL. NACL 0.9 % [Concomitant]
     Dosage: 200 ML;
     Route: 042
     Dates: start: 20100818, end: 20100822
  20. SOLUTIO NATRII CHLORIDI 0.9% [Concomitant]
     Indication: ABSCESS
     Dosage: 200 ML;
     Route: 042
     Dates: start: 20100825
  21. METRONIDAZOLUM [Concomitant]
     Indication: ABSCESS
     Dosage: 200 ML;
     Route: 042
     Dates: start: 20100825
  22. SOL. NACL 0.9 % [Concomitant]
     Indication: PREMEDICATION
     Dosage: 400 ML;
     Route: 042
     Dates: start: 20100810, end: 20100813
  23. ASPARGINAT K [Concomitant]
     Indication: PREMEDICATION
     Dosage: 5 ML;
     Route: 042
     Dates: start: 20100810, end: 20100810
  24. DEXTROSUM 5% [Concomitant]
     Dosage: 400 ML;
     Route: 042
     Dates: start: 20100824, end: 20100825
  25. ONDANSETRONUM [Concomitant]
     Indication: FEBRILE NEUTROPENIA
     Dosage: 8 MILLIGRAM;
     Route: 042
     Dates: start: 20100821, end: 20100823
  26. TIENAM [Concomitant]
     Indication: FEBRILE NEUTROPENIA
     Dosage: 3000 MILLIGRAM;
     Route: 042
     Dates: start: 20100818, end: 20100822
  27. YOGURT [Concomitant]
     Indication: FEBRILE NEUTROPENIA
     Dosage: 3 DOSAGE FORMS;
     Route: 048
     Dates: start: 20100818
  28. ACIDUM ASCORBICUM 10% [Concomitant]
     Indication: FEBRILE NEUTROPENIA
     Dosage: 6 ML;
     Route: 042
     Dates: start: 20100820, end: 20100825
  29. ALBUMINUM HUMANUM 10% [Concomitant]
     Indication: FEBRILE NEUTROPENIA
     Dosage: 100 ML;
     Route: 042
     Dates: start: 20100820, end: 20100820
  30. BENZYLPENICILLINUM [Concomitant]
     Indication: ABSCESS
     Dosage: 6000000 IU (INTERNATIONAL UNIT);
     Route: 030
     Dates: start: 20100824, end: 20100824
  31. ETAMSYLATE [Concomitant]
     Indication: PROPHYLAXIS
     Dosage: 2 ML;
     Route: 042
     Dates: start: 20100810, end: 20100810
  32. HARTMANN'S SOLUTION [Concomitant]
     Dosage: 400 ML;
     Route: 042
     Dates: start: 20100824, end: 20100824
  33. DEXTROSUM 5% [Concomitant]
     Dosage: 400 ML;
     Route: 042
     Dates: start: 20100821, end: 20100821
  34. FLUCONAZOLUM [Concomitant]
     Indication: FEBRILE NEUTROPENIA
     Dosage: 100 MILLIGRAM;
     Route: 042
     Dates: start: 20100818, end: 20100822
  35. METOCLOPRAMIDUM [Concomitant]
     Indication: FEBRILE NEUTROPENIA
     Dosage: 30 MILLIGRAM;
     Route: 030
     Dates: start: 20100818, end: 20100821
  36. CEFTRIAXONUM [Concomitant]
     Indication: ABSCESS
     Dosage: 2 GRAM;
     Route: 042
     Dates: start: 20100825
  37. XM22 PEG-FILGRASTIM [Suspect]
     Indication: COLONY STIMULATING FACTOR PROPHYLAXIS
     Dosage: BLINDED XM22 6 MG OR PLACEBO
     Route: 058
     Dates: start: 20100813, end: 20100813
  38. CLEMASTINE FUMARATE [Concomitant]
     Indication: PREMEDICATION
     Dosage: 2 ML;
     Route: 042
     Dates: start: 20100810, end: 20100810
  39. GLUCOSUM 5% (DEXTROSUM) [Concomitant]
     Indication: PREMEDICATION
     Dosage: 200 ML;
     Route: 042
     Dates: start: 20100810, end: 20100810
  40. OMEPRAZOLUM [Concomitant]
     Indication: FEBRILE NEUTROPENIA
     Dosage: 20 MILLIGRAM;
     Route: 042
     Dates: start: 20100818, end: 20100821
  41. SOL. NACL 0.9 % [Concomitant]
     Dosage: 200 ML;
     Route: 042
     Dates: start: 20100820, end: 20100822
  42. CISPLATIN [Suspect]
     Indication: NON-SMALL CELL LUNG CANCER
     Dosage: 138 MILLIGRAM;
     Route: 041
     Dates: start: 20100810, end: 20100810
  43. THIAMINE 2.4% [Concomitant]
     Indication: PREMEDICATION
     Dosage: 1 ML;
     Route: 042
     Dates: start: 20100810, end: 20100812
  44. HARTMANN'S SOLUTION [Concomitant]
     Dosage: 400 ML;
     Route: 042
     Dates: start: 20100822, end: 20100822
  45. SOL. NACL 0.9 % [Concomitant]
     Indication: FEBRILE NEUTROPENIA
     Dosage: 200 ML;
     Route: 042
     Dates: start: 20100818, end: 20100824
  46. FAMOTIDINUM [Concomitant]
     Indication: FEBRILE NEUTROPENIA
     Dosage: 20 MILLIGRAM;
     Route: 042
     Dates: start: 20100818, end: 20100824
  47. MILDRONATE [Concomitant]
     Route: 042
     Dates: start: 20100824, end: 20100826

REACTIONS (1)
  - ABSCESS LIMB [None]
